FAERS Safety Report 14947349 (Version 1)
Quarter: 2018Q2

REPORT INFORMATION
  Report Type: Spontaneous
  Country: US (occurrence: US)
  Receive Date: 20180508
  Receipt Date: 20180508
  Transmission Date: 20180711
  Serious: Yes (Hospitalization)
  Sender: FDA-Public Use
  Company Number: None

PATIENT
  Age: 52 Year
  Sex: Male
  Weight: 78.4 kg

DRUGS (2)
  1. GEMCITABINE [Suspect]
     Active Substance: GEMCITABINE\GEMCITABINE HYDROCHLORIDE
     Dosage: ?          OTHER FREQUENCY:DAY 8-14;?
     Route: 048
     Dates: start: 20180404, end: 20180410
  2. LEE011, RIBOCICLIB [Suspect]
     Active Substance: RIBOCICLIB
     Dosage: ?          OTHER FREQUENCY:DAY 1 + 8;?
     Route: 042
     Dates: end: 20180404

REACTIONS (4)
  - Chills [None]
  - Sepsis [None]
  - Vomiting [None]
  - Pneumonia [None]

NARRATIVE: CASE EVENT DATE: 20180501
